FAERS Safety Report 7887971-6 (Version None)
Quarter: 2011Q4

REPORT INFORMATION
  Report Type: 
  Country: None (occurrence: None)
  Receive Date: 20111103
  Receipt Date: 20111026
  Transmission Date: 20120403
  Serious: Yes (Hospitalization)
  Sender: FDA-Public Use
  Company Number: US-ASTELLAS-2011US005665

PATIENT
  Age: 68 Year
  Sex: Male
  Weight: 71 kg

DRUGS (4)
  1. ERLOTINIB HYDROCHLORIDE [Suspect]
     Dosage: 50 MG, UID/QD
     Route: 048
     Dates: start: 20110923
  2. AZD6244 HYDROGEN SULFATE [Suspect]
     Indication: LUNG SQUAMOUS CELL CARCINOMA STAGE UNSPECIFIED
     Dosage: 150 MG, UID/QD
     Route: 048
     Dates: start: 20110823, end: 20110906
  3. ERLOTINIB HYDROCHLORIDE [Suspect]
     Indication: LUNG SQUAMOUS CELL CARCINOMA STAGE UNSPECIFIED
     Dosage: 100 MG, UID/QD
     Route: 048
     Dates: start: 20110823, end: 20110905
  4. AZD6244 HYDROGEN SULFATE [Suspect]
     Dosage: 150 MG, UID/QD
     Route: 048
     Dates: start: 20110923

REACTIONS (4)
  - HYPOAESTHESIA [None]
  - ANAEMIA [None]
  - RASH [None]
  - DIARRHOEA [None]
